FAERS Safety Report 10464513 (Version 2)
Quarter: 2015Q1

REPORT INFORMATION
  Report Type: Spontaneous
  Country: MX (occurrence: MX)
  Receive Date: 20140919
  Receipt Date: 20150213
  Transmission Date: 20150720
  Serious: Yes (Other)
  Sender: FDA-Public Use
  Company Number: MX-ELI_LILLY_AND_COMPANY-MX201409004446

PATIENT
  Sex: Female
  Weight: 60 kg

DRUGS (3)
  1. METFORMIN [Concomitant]
     Active Substance: METFORMIN HYDROCHLORIDE
     Dosage: 500 MG, BID
  2. HUMALOG [Suspect]
     Active Substance: INSULIN LISPRO
     Indication: PRODUCT USED FOR UNKNOWN INDICATION
     Dosage: 13 IU, EACH MORNING
     Route: 065
     Dates: start: 20140830
  3. HUMALOG [Suspect]
     Active Substance: INSULIN LISPRO
     Dosage: 10 IU, EACH EVENING
     Route: 065
     Dates: start: 20140830

REACTIONS (5)
  - Wound [Recovered/Resolved]
  - Wound necrosis [Recovered/Resolved]
  - Blood glucose increased [Unknown]
  - Pain [Unknown]
  - Feeling abnormal [Unknown]
